FAERS Safety Report 5565901-X (Version None)
Quarter: 2007Q4

REPORT INFORMATION
  Report Type: 
  Country: None (occurrence: None)
  Receive Date: 20071213
  Receipt Date: 20071205
  Transmission Date: 20080405
  Serious: Yes (Hospitalization)
  Sender: FDA-Public Use
  Company Number: 2007SP024388

PATIENT
  Age: 56 Year
  Sex: Female

DRUGS (4)
  1. TEMODAL [Suspect]
     Indication: GLIOBLASTOMA
     Dosage: 120 MG;QD;PO
     Route: 048
     Dates: start: 20070912, end: 20071001
  2. KEPPRA [Concomitant]
  3. DEPAKENE [Concomitant]
  4. MEDROL [Concomitant]

REACTIONS (2)
  - HEPATITIS CHOLESTATIC [None]
  - HEPATOMEGALY [None]
